FAERS Safety Report 4500232-8 (Version None)
Quarter: 2004Q4

REPORT INFORMATION
  Report Type: 
  Country: None (occurrence: None)
  Receive Date: 20041109
  Receipt Date: 20041025
  Transmission Date: 20050328
  Serious: Yes (Hospitalization)
  Sender: FDA-Public Use
  Company Number: CART-10022

PATIENT
  Age: 22 Year
  Sex: Female
  Weight: 73.7095 kg

DRUGS (1)
  1. CARTICEL [Suspect]
     Indication: ARTHROPATHY
     Dosage: 1 NA ONCE IS
     Dates: start: 20001017, end: 20001017

REACTIONS (5)
  - CHONDROMALACIA [None]
  - DISEASE RECURRENCE [None]
  - DRUG INEFFECTIVE [None]
  - EXOSTOSIS [None]
  - GRAFT COMPLICATION [None]
